FAERS Safety Report 19205148 (Version 2)
Quarter: 2021Q2

REPORT INFORMATION
  Report Type: Report from Study
  Country: US (occurrence: US)
  Receive Date: 20210503
  Receipt Date: 20210522
  Transmission Date: 20210717
  Serious: Yes (Hospitalization)
  Sender: FDA-Public Use
  Company Number: US-ROCHE-2815599

PATIENT
  Age: 57 Year
  Sex: Male
  Weight: 80.45 kg

DRUGS (1)
  1. BFCR4350A (ANTI?FCRH5/CD3 BISPECIFIC ANTIBODY) [Suspect]
     Active Substance: CEVOSTAMAB
     Indication: PLASMA CELL MYELOMA
     Dosage: DOSE (3.6 MG) LAST STUDY DRUG ADMIN PRIOR AE 19/APR/2021?DOSE (160 MG) LAST STUDY DRUG ADMIN PRIOR S
     Route: 042
     Dates: start: 20210412

REACTIONS (1)
  - Cytokine release syndrome [Not Recovered/Not Resolved]

NARRATIVE: CASE EVENT DATE: 20210420
